FAERS Safety Report 21797017 (Version 1)
Quarter: 2022Q4

REPORT INFORMATION
  Report Type: Spontaneous
  Country: US (occurrence: US)
  Receive Date: 20221230
  Receipt Date: 20221230
  Transmission Date: 20230113
  Serious: Yes (Other)
  Sender: FDA-Public Use
  Company Number: US-BRISTOL-MYERS SQUIBB COMPANY-2022-056303

PATIENT
  Age: 60 Year
  Sex: Female

DRUGS (3)
  1. REVLIMID [Suspect]
     Active Substance: LENALIDOMIDE
     Indication: Plasma cell myeloma
     Route: 048
     Dates: start: 202204
  2. REVLIMID [Suspect]
     Active Substance: LENALIDOMIDE
     Dosage: RESTARTED ON AN UNKNOWN DATE
     Dates: start: 2022
  3. XARELTO [Concomitant]
     Active Substance: RIVAROXABAN

REACTIONS (1)
  - Thrombosis [Unknown]

NARRATIVE: CASE EVENT DATE: 20220601
